FAERS Safety Report 5511450-4 (Version None)
Quarter: 2007Q4

REPORT INFORMATION
  Report Type: 
  Country: None (occurrence: None)
  Receive Date: 20071109
  Receipt Date: 20071108
  Transmission Date: 20080405
  Serious: Yes (Hospitalization)
  Sender: FDA-Public Use
  Company Number: FR-JNJFOC-20071102582

PATIENT
  Age: 30 Year
  Sex: Male

DRUGS (1)
  1. HALDOL DECANOAS [Suspect]
     Indication: DRUG USE FOR UNKNOWN INDICATION

REACTIONS (3)
  - HYPERHIDROSIS [None]
  - HYPERTONIA [None]
  - NECROTISING COLITIS [None]
